FAERS Safety Report 6598638-9 (Version None)
Quarter: 2010Q1

REPORT INFORMATION
  Report Type: 
  Country: None (occurrence: None)
  Receive Date: 20100219
  Receipt Date: 20100219
  Transmission Date: 20100710
  Serious: Yes (Hospitalization, Other)
  Sender: FDA-Public Use
  Company Number: None

PATIENT
  Age: 89 Year
  Sex: Female
  Weight: 66.8 kg

DRUGS (2)
  1. NAMENDA [Suspect]
     Indication: DEMENTIA ALZHEIMER'S TYPE
     Dosage: NAMENDA 2 PILLS AT NIGHT
     Dates: start: 20091217
  2. EXELON [Suspect]
     Indication: DEMENTIA
     Dosage: EXELON PATCH DAILY
     Dates: start: 20091217

REACTIONS (12)
  - ABASIA [None]
  - COMMUNICATION DISORDER [None]
  - DECREASED APPETITE [None]
  - DROOLING [None]
  - DYSPHAGIA [None]
  - DYSSTASIA [None]
  - FEEDING DISORDER [None]
  - HEARING IMPAIRED [None]
  - LOSS OF CONSCIOUSNESS [None]
  - OEDEMA PERIPHERAL [None]
  - SCRATCH [None]
  - UNRESPONSIVE TO STIMULI [None]
